FAERS Safety Report 23756934 (Version 1)
Quarter: 2024Q2

REPORT INFORMATION
  Report Type: Spontaneous
  Country: US (occurrence: US)
  Receive Date: 20240418
  Receipt Date: 20240418
  Transmission Date: 20240716
  Serious: No
  Sender: FDA-Public Use
  Company Number: US-GILEAD-2024-0669624

PATIENT
  Age: 50 Year
  Sex: Male

DRUGS (5)
  1. EPCLUSA [Suspect]
     Active Substance: SOFOSBUVIR\VELPATASVIR
     Indication: Chronic hepatitis C
     Dosage: 1 DOSAGE FORM, QD [TAKE 1 TABLET BY MOUTH ONCE DAILY]
     Route: 048
     Dates: start: 20140330
  2. LAMICTAL [Concomitant]
     Active Substance: LAMOTRIGINE
  3. CRESTOR [Concomitant]
     Active Substance: ROSUVASTATIN CALCIUM
  4. MORNIFLUMATE [Concomitant]
     Active Substance: MORNIFLUMATE
  5. STRATTERA [Concomitant]
     Active Substance: ATOMOXETINE HYDROCHLORIDE

REACTIONS (1)
  - Fatigue [Unknown]
